FAERS Safety Report 16209054 (Version 1)
Quarter: 2019Q2

REPORT INFORMATION
  Report Type: Spontaneous
  Country: CA (occurrence: CA)
  Receive Date: 20190417
  Receipt Date: 20190417
  Transmission Date: 20190711
  Serious: Yes (Other)
  Sender: FDA-Public Use
  Company Number: CA-ASCEND THERAPEUTICS-2065972

PATIENT
  Sex: Female

DRUGS (5)
  1. ESTROGEL [Suspect]
     Active Substance: ESTRADIOL
     Indication: DEPRESSIVE SYMPTOM
     Route: 062
  2. PROMETRIUM [Suspect]
     Active Substance: PROGESTERONE
  3. PROMETRIUM [Suspect]
     Active Substance: PROGESTERONE
  4. ESTRADIOL. [Suspect]
     Active Substance: ESTRADIOL
     Route: 062
  5. PROMETRIUM [Suspect]
     Active Substance: PROGESTERONE
     Route: 048

REACTIONS (1)
  - Deep vein thrombosis [Unknown]
